FAERS Safety Report 12586354 (Version 4)
Quarter: 2016Q3

REPORT INFORMATION
  Report Type: Spontaneous
  Country: US (occurrence: US)
  Receive Date: 20160725
  Receipt Date: 20160808
  Transmission Date: 20161109
  Serious: Yes (Other)
  Sender: FDA-Public Use
  Company Number: US-HORIZON-BUP-0084-2016

PATIENT
  Age: 31 Year
  Sex: Female

DRUGS (8)
  1. CITRULLINE [Concomitant]
     Active Substance: CITRULLINE
  2. LACTULOSE. [Concomitant]
     Active Substance: LACTULOSE
  3. MULTIVITAMIN [Concomitant]
     Active Substance: VITAMINS
  4. BUPHENYL [Suspect]
     Active Substance: SODIUM PHENYLBUTYRATE
     Indication: ORNITHINE TRANSCARBAMOYLASE DEFICIENCY
     Dosage: 6 TABLETS TID
     Route: 048
     Dates: start: 2000
  5. DIFLOXACIN [Concomitant]
  6. OMEPRAZOLE. [Concomitant]
     Active Substance: OMEPRAZOLE
  7. CALCIUM [Concomitant]
     Active Substance: CALCIUM
  8. XIFAXAN [Concomitant]
     Active Substance: RIFAXIMIN

REACTIONS (4)
  - Antinuclear antibody increased [Not Recovered/Not Resolved]
  - Retching [Unknown]
  - Hyperammonaemia [Recovered/Resolved]
  - White blood cell count decreased [Not Recovered/Not Resolved]

NARRATIVE: CASE EVENT DATE: 20160217
